FAERS Safety Report 7189408-1 (Version None)
Quarter: 2010Q4

REPORT INFORMATION
  Report Type: 
  Country: None (occurrence: None)
  Receive Date: 20101222
  Receipt Date: 20101210
  Transmission Date: 20110411
  Serious: Yes (Other)
  Sender: FDA-Public Use
  Company Number: AR-AMGEN-ARGSP2010008388

PATIENT

DRUGS (2)
  1. ENBREL [Suspect]
     Dosage: UNK
  2. ENBREL [Suspect]
     Dosage: 50 MG, WEEKLY
     Route: 058
     Dates: start: 20100901

REACTIONS (5)
  - ABASIA [None]
  - DAYDREAMING [None]
  - DIZZINESS [None]
  - FEELING ABNORMAL [None]
  - PARALYSIS [None]
